FAERS Safety Report 9991254 (Version 2)
Quarter: 2014Q2

REPORT INFORMATION
  Report Type: Spontaneous
  Country: US (occurrence: US)
  Receive Date: 20140310
  Receipt Date: 20140403
  Transmission Date: 20141212
  Serious: No
  Sender: FDA-Public Use
  Company Number: US-PFIZER INC-2014066401

PATIENT
  Age: 61 Year
  Sex: Female

DRUGS (1)
  1. ESTRING [Suspect]
     Dosage: UNK
     Route: 067
     Dates: start: 1976

REACTIONS (3)
  - Drug ineffective [Unknown]
  - Vulvovaginal dryness [Unknown]
  - Skin fissures [Unknown]
